FAERS Safety Report 6216430-1 (Version None)
Quarter: 2009Q2

REPORT INFORMATION
  Report Type: 
  Country: None (occurrence: None)
  Receive Date: 20090603
  Receipt Date: 20090603
  Transmission Date: 20091009
  Serious: Yes (Other)
  Sender: FDA-Public Use
  Company Number: None

PATIENT
  Age: 77 Year
  Sex: Female
  Weight: 49.8957 kg

DRUGS (1)
  1. FEMARA [Suspect]
     Indication: BREAST CANCER STAGE I
     Dosage: 1 TABLET DAILY AT SAME TIME PO
     Route: 048
     Dates: start: 20070306, end: 20090525

REACTIONS (5)
  - BLOOD CHOLESTEROL INCREASED [None]
  - BODY TEMPERATURE INCREASED [None]
  - DYSPNOEA [None]
  - HYPERTENSION [None]
  - WEIGHT INCREASED [None]
